FAERS Safety Report 7279652-7 (Version None)
Quarter: 2011Q1

REPORT INFORMATION
  Report Type: 
  Country: None (occurrence: None)
  Receive Date: 20110203
  Receipt Date: 20110203
  Transmission Date: 20110831
  Serious: Yes (Hospitalization)
  Sender: FDA-Public Use
  Company Number: None

PATIENT
  Sex: Female
  Weight: 77.5 kg

DRUGS (11)
  1. GABAPENTIN [Concomitant]
  2. MAG OXIDE [Concomitant]
  3. TAXOL [Suspect]
     Dosage: 299 MG
  4. FLAGYL [Concomitant]
  5. AVELOX [Concomitant]
  6. LASIX [Concomitant]
  7. CISPLATIN [Suspect]
     Dosage: 94 MG
  8. DOXORUBICIN HYDROCHLORIDE [Suspect]
     Dosage: 84 MG
  9. PRANDIN [Concomitant]
  10. STARLIX [Concomitant]
  11. LOVENOX [Concomitant]

REACTIONS (4)
  - OEDEMA PERIPHERAL [None]
  - TERMINAL STATE [None]
  - MALNUTRITION [None]
  - FALL [None]
